FAERS Safety Report 14778716 (Version 2)
Quarter: 2018Q2

REPORT INFORMATION
  Report Type: Report from Study
  Country: US (occurrence: US)
  Receive Date: 20180419
  Receipt Date: 20180521
  Transmission Date: 20180711
  Serious: Yes (Hospitalization, Other)
  Sender: FDA-Public Use
  Company Number: US-JNJFOC-20180420161

PATIENT
  Sex: Male

DRUGS (9)
  1. IMBRUVICA [Suspect]
     Active Substance: IBRUTINIB
     Indication: CHRONIC LYMPHOCYTIC LEUKAEMIA
     Route: 048
     Dates: start: 20180421
  2. DOXYCYCLINE. [Concomitant]
     Active Substance: DOXYCYCLINE
  3. ZOFRAN [Concomitant]
     Active Substance: ONDANSETRON HYDROCHLORIDE
  4. ZANTAC [Concomitant]
     Active Substance: RANITIDINE HYDROCHLORIDE
  5. SALBUTAMOL [Concomitant]
     Active Substance: ALBUTEROL
  6. TOPROL XL [Concomitant]
     Active Substance: METOPROLOL SUCCINATE
  7. IMBRUVICA [Suspect]
     Active Substance: IBRUTINIB
     Indication: CHRONIC LYMPHOCYTIC LEUKAEMIA
     Route: 048
     Dates: start: 20160726, end: 20180420
  8. PROCHLORPERAZINE. [Concomitant]
     Active Substance: PROCHLORPERAZINE
  9. IMBRUVICA [Suspect]
     Active Substance: IBRUTINIB
     Indication: CHRONIC LYMPHOCYTIC LEUKAEMIA
     Route: 048
     Dates: start: 20160722

REACTIONS (6)
  - Platelet count decreased [Unknown]
  - Haemoglobin decreased [Unknown]
  - Oesophageal haemorrhage [Unknown]
  - Fatigue [Unknown]
  - Dyspnoea [Unknown]
  - Red blood cell count decreased [Unknown]
